FAERS Safety Report 9377176 (Version 4)
Quarter: 2013Q3

REPORT INFORMATION
  Report Type: Report from Study
  Country: US (occurrence: US)
  Receive Date: 20130701
  Receipt Date: 20130917
  Transmission Date: 20140515
  Serious: Yes (Death, Life-Threatening)
  Sender: FDA-Public Use
  Company Number: US-SANOFI-AVENTIS-2013SA064954

PATIENT
  Age: 65 Year
  Sex: Male
  Weight: 71.9 kg

DRUGS (24)
  1. ZALTRAP [Suspect]
     Indication: METASTATIC GASTRIC CANCER
     Route: 041
     Dates: start: 20130106, end: 20130106
  2. ZALTRAP [Suspect]
     Indication: METASTATIC GASTRIC CANCER
     Route: 041
     Dates: start: 20130409, end: 20130409
  3. ZALTRAP [Suspect]
     Indication: METASTATIC GASTRIC CANCER
     Route: 041
     Dates: start: 20130423, end: 20130423
  4. OXALIPLATIN [Suspect]
     Dates: start: 20130618
  5. OXALIPLATIN [Suspect]
     Route: 065
     Dates: start: 20130409, end: 20130409
  6. OXALIPLATIN [Suspect]
     Route: 065
     Dates: start: 20130423, end: 20130423
  7. FU [Suspect]
     Dates: start: 20130618
  8. FU [Suspect]
     Route: 040
     Dates: start: 20130409, end: 20130409
  9. FU [Suspect]
     Route: 040
     Dates: start: 20130423, end: 20130423
  10. FOLINIC ACID [Suspect]
     Dates: start: 20130618
  11. AMOXICILLIN [Concomitant]
  12. BACLOFEN [Concomitant]
  13. COLACE [Concomitant]
  14. COMPAZINE [Concomitant]
  15. DECADRON [Concomitant]
  16. DOXAZOSIN [Concomitant]
  17. LOMOTIL [Concomitant]
  18. LORAZEPAM [Concomitant]
  19. OXYCODONE [Concomitant]
  20. PROTONIX [Concomitant]
  21. REMERON [Concomitant]
  22. SENNA LIQUID EXTRACT [Concomitant]
  23. ZOFRAN [Concomitant]
  24. ZOLPIDEM [Concomitant]

REACTIONS (13)
  - Brain herniation [Fatal]
  - Urinary retention [Unknown]
  - Haemorrhagic stroke [Fatal]
  - Cerebellar haemorrhage [Fatal]
  - Cerebral haemorrhage [Fatal]
  - Vomiting [Fatal]
  - Headache [Fatal]
  - Nausea [Fatal]
  - Dizziness [Fatal]
  - Brain oedema [Fatal]
  - Nervous system disorder [Fatal]
  - Hypertension [Unknown]
  - Pulmonary embolism [Recovered/Resolved]
